FAERS Safety Report 9081867 (Version 1)
Quarter: 2013Q1

REPORT INFORMATION
  Report Type: Spontaneous
  Country: FR (occurrence: FR)
  Receive Date: 20130131
  Receipt Date: 20130131
  Transmission Date: 20140127
  Serious: Yes (Other)
  Sender: FDA-Public Use
  Company Number: FR-JNJFOC-20130114359

PATIENT
  Sex: 0

DRUGS (2)
  1. EPITOMAX [Suspect]
     Indication: ABNORMAL BEHAVIOUR
     Route: 048
  2. EPITOMAX [Suspect]
     Indication: OVERWEIGHT
     Route: 048

REACTIONS (2)
  - Neutropenia [Unknown]
  - Off label use [Unknown]
